FAERS Safety Report 10079151 (Version 1)
Quarter: 2014Q2

REPORT INFORMATION
  Report Type: Report from Study
  Country: CA (occurrence: CA)
  Receive Date: 20140415
  Receipt Date: 20140415
  Transmission Date: 20141212
  Serious: Yes (Death, Hospitalization)
  Sender: FDA-Public Use
  Company Number: CA-JNJFOC-20140407090

PATIENT
  Age: 30 Year
  Sex: Male

DRUGS (2)
  1. TYLENOL [Suspect]
     Indication: PRODUCT USED FOR UNKNOWN INDICATION
     Route: 065
     Dates: start: 19990820, end: 19990822
  2. ETHANOL [Concomitant]
     Indication: ALCOHOLISM
     Route: 048

REACTIONS (6)
  - Toxicity to various agents [Fatal]
  - Acute hepatic failure [Fatal]
  - Hepatic encephalopathy [Fatal]
  - Coma [Fatal]
  - Hepatorenal syndrome [Fatal]
  - Renal failure acute [Fatal]
